FAERS Safety Report 14307896 (Version 2)
Quarter: 2018Q1

REPORT INFORMATION
  Report Type: Spontaneous
  Country: JP (occurrence: JP)
  Receive Date: 20171220
  Receipt Date: 20180222
  Transmission Date: 20180509
  Serious: Yes (Hospitalization)
  Sender: FDA-Public Use
  Company Number: JP-ELI_LILLY_AND_COMPANY-JP201712003965

PATIENT
  Age: 56 Year
  Sex: Female
  Weight: 48 kg

DRUGS (3)
  1. MIYA-BM [Concomitant]
     Active Substance: CLOSTRIDIUM BUTYRICUM SPORES STRAIN M-55
     Indication: DIARRHOEA
     Dosage: 3 DF, TID
     Route: 048
     Dates: start: 20170828
  2. CYRAMZA [Suspect]
     Active Substance: RAMUCIRUMAB
     Indication: RECTAL ADENOCARCINOMA
     Dosage: 350 MG, OTHER
     Route: 041
     Dates: start: 20171113, end: 20171113
  3. TOPOTECIN [Concomitant]
     Active Substance: IRINOTECAN HYDROCHLORIDE
     Indication: RECTAL ADENOCARCINOMA
     Dosage: 100 MG, OTHER
     Route: 041
     Dates: start: 20171113, end: 20171113

REACTIONS (2)
  - Nephrotic syndrome [Recovering/Resolving]
  - Off label use [Recovered/Resolved]

NARRATIVE: CASE EVENT DATE: 20171113
